FAERS Safety Report 9640327 (Version 2)
Quarter: 2013Q4

REPORT INFORMATION
  Report Type: Report from Study
  Country: US (occurrence: US)
  Receive Date: 20131023
  Receipt Date: 20131023
  Transmission Date: 20140711
  Serious: Yes (Other)
  Sender: FDA-Public Use
  Company Number: US-ROCHE-1276017

PATIENT
  Age: 51 Year
  Sex: Female

DRUGS (4)
  1. AVASTIN [Suspect]
     Indication: OVARIAN CANCER
     Dosage: FIRST LINE DOSE
     Route: 065
  2. AVASTIN [Suspect]
     Dosage: SECOND LINE DOSE
     Route: 065
  3. CARBOPLATIN [Concomitant]
  4. GEMZAR [Concomitant]

REACTIONS (5)
  - Ascites [Unknown]
  - Disease progression [Unknown]
  - Drug dose omission [Unknown]
  - Appetite disorder [Unknown]
  - Pain [Unknown]
